FAERS Safety Report 9305448 (Version 1)
Quarter: 2013Q2

REPORT INFORMATION
  Report Type: Spontaneous
  Country: US (occurrence: US)
  Receive Date: 20130523
  Receipt Date: 20130523
  Transmission Date: 20140414
  Serious: Yes (Hospitalization)
  Sender: FDA-Public Use
  Company Number: US-BAYER-2013-063359

PATIENT
  Age: 27 Year
  Sex: Female

DRUGS (12)
  1. YAZ [Suspect]
  2. CHANTIX [Concomitant]
     Dosage: 1 MG, UNK
  3. ABILIFY [Concomitant]
     Dosage: 15 MG, UNK
  4. AMOXICILLIN [Concomitant]
     Indication: TOOTH ABSCESS
     Dosage: 500 MG, UNK
  5. ALPRAZOLAM [Concomitant]
     Dosage: 2 MG, UNK
  6. FLUOXETINE [Concomitant]
     Dosage: 20 MG, UNK
  7. LITHIUM CARBONATE [Concomitant]
     Dosage: 300 MG, UNK
  8. REQUIP [Concomitant]
     Indication: RESTLESS LEGS SYNDROME
     Dosage: 1 MG, UNK
  9. XANAX [Concomitant]
     Indication: ANXIETY
  10. PROZAC [Concomitant]
     Indication: BIPOLAR DISORDER
  11. FLEXERIL [Concomitant]
  12. LITHIUM [Concomitant]
     Indication: BIPOLAR DISORDER
     Dosage: 300 UNK, UNK

REACTIONS (1)
  - Pulmonary embolism [Recovered/Resolved]
